FAERS Safety Report 5213851-0 (Version None)
Quarter: 2007Q1

REPORT INFORMATION
  Report Type: 
  Country: None (occurrence: None)
  Receive Date: 20070117
  Receipt Date: 20070103
  Transmission Date: 20070707
  Serious: Yes (Hospitalization)
  Sender: FDA-Public Use
  Company Number: 234527

PATIENT
  Age: 75 Year
  Sex: Female

DRUGS (5)
  1. AVASTIN [Suspect]
     Indication: COLORECTAL CANCER
     Dosage: INTRAVENOUS
     Route: 042
  2. PANITUMUMAB (PANITUMUMAB) [Suspect]
     Indication: COLORECTAL CANCER
     Dosage: 361 MG, Q2W, INTRAVENOUS
     Route: 042
     Dates: start: 20060920
  3. IRINOTECAN HCL [Suspect]
     Indication: COLORECTAL CANCER
     Dosage: INTRAVENOUS
     Route: 042
  4. FLUOROURACIL [Suspect]
     Indication: COLORECTAL CANCER
     Dosage: INTRAVENOUS
     Route: 042
  5. LEUCOVORIN CALCIUM [Suspect]
     Dosage: INTRAVENOUS
     Route: 042

REACTIONS (3)
  - ABDOMINAL PAIN [None]
  - DEHYDRATION [None]
  - MALNUTRITION [None]
